FAERS Safety Report 6972242-2 (Version None)
Quarter: 2010Q3

REPORT INFORMATION
  Report Type: 
  Country: None (occurrence: None)
  Receive Date: 20100909
  Receipt Date: 20100827
  Transmission Date: 20110219
  Serious: Yes (Hospitalization, Other)
  Sender: FDA-Public Use
  Company Number: ZA-BAYER-201034723GPV

PATIENT
  Age: 46 Year
  Sex: Female
  Weight: 63 kg

DRUGS (3)
  1. MIRENA [Suspect]
     Indication: MENORRHAGIA
     Route: 015
     Dates: start: 20100211, end: 20100101
  2. AZATHIOPRINE [Concomitant]
     Indication: MYASTHENIA GRAVIS
     Dates: start: 20100713
  3. MESTON [Concomitant]
     Indication: MYASTHENIA GRAVIS

REACTIONS (1)
  - MAJOR DEPRESSION [None]
